FAERS Safety Report 20500115 (Version 1)
Quarter: 2022Q1

REPORT INFORMATION
  Report Type: Other
  Country: GB (occurrence: GB)
  Receive Date: 20220222
  Receipt Date: 20220222
  Transmission Date: 20220423
  Serious: Yes (Death, Hospitalization)
  Sender: FDA-Public Use
  Company Number: None

PATIENT
  Sex: Male

DRUGS (4)
  1. PREDNISOLONE [Suspect]
     Active Substance: PREDNISOLONE
     Indication: Prostate cancer metastatic
     Dosage: 10 MILLIGRAM PER DAY (TABLET)
     Route: 048
     Dates: start: 20211012
  2. ABIRATERONE ACETATE [Suspect]
     Active Substance: ABIRATERONE ACETATE
     Indication: Prostate cancer metastatic
     Dosage: 1000 MILLIGRAM, QD
     Route: 048
     Dates: start: 20211012
  3. BENDROFLUMETHIAZIDE [Concomitant]
     Active Substance: BENDROFLUMETHIAZIDE
     Indication: Hypertension
     Dosage: 2.5 MILLIGRAM PER DAY (END DATE: ON AN UNSPECIFIED DATE IN 2021)
     Route: 048
     Dates: start: 20200730, end: 2021
  4. TAMSULOSIN [Concomitant]
     Active Substance: TAMSULOSIN
     Indication: Bladder disorder
     Dosage: 40 MILLIGRAM, UNK (END DATE: ON AN UNSPECIFIED DATE IN 2021)
     Route: 048
     Dates: start: 20190912, end: 2021

REACTIONS (2)
  - Kidney infection [Fatal]
  - Sepsis [Fatal]

NARRATIVE: CASE EVENT DATE: 20211222
